FAERS Safety Report 9089837 (Version 1)
Quarter: 2013Q1

REPORT INFORMATION
  Report Type: Spontaneous
  Country: US (occurrence: US)
  Receive Date: 20130131
  Receipt Date: 20130131
  Transmission Date: 20140127
  Serious: No
  Sender: FDA-Public Use
  Company Number: US-ABBOTT-12P-163-1011474-00

PATIENT
  Sex: Female

DRUGS (4)
  1. HUMIRA [Suspect]
     Indication: RHEUMATOID ARTHRITIS
     Route: 058
     Dates: start: 201207
  2. METHOTREXATE [Concomitant]
     Indication: RHEUMATOID ARTHRITIS
     Route: 048
     Dates: end: 201211
  3. METHOTREXATE [Concomitant]
     Route: 048
     Dates: start: 201211
  4. FOLIC ACID [Concomitant]
     Indication: POLYMEDICATION

REACTIONS (2)
  - Device malfunction [Unknown]
  - Drug ineffective [Not Recovered/Not Resolved]
